FAERS Safety Report 8377655-2 (Version None)
Quarter: 2012Q2

REPORT INFORMATION
  Report Type: 
  Country: None (occurrence: None)
  Receive Date: 20120522
  Receipt Date: 20120515
  Transmission Date: 20120825
  Serious: Yes (Hospitalization, Other)
  Sender: FDA-Public Use
  Company Number: CN-JNJFOC-20111103497

PATIENT
  Sex: Male
  Weight: 70 kg

DRUGS (3)
  1. TOPAMAX [Suspect]
     Route: 048
  2. TOPAMAX [Suspect]
     Route: 048
     Dates: start: 20110901, end: 20111104
  3. TOPAMAX [Suspect]
     Indication: EPILEPSY
     Route: 048

REACTIONS (4)
  - VISUAL IMPAIRMENT [None]
  - BODY DYSMORPHIC DISORDER [None]
  - ABDOMINAL PAIN [None]
  - DIARRHOEA [None]
